FAERS Safety Report 19808534 (Version 1)
Quarter: 2021Q3

REPORT INFORMATION
  Report Type: Spontaneous
  Country: GB (occurrence: GB)
  Receive Date: 20210909
  Receipt Date: 20210909
  Transmission Date: 20211014
  Serious: Yes (Hospitalization)
  Sender: FDA-Public Use
  Company Number: NVSC2021GB165779

PATIENT
  Age: 58 Year
  Sex: Female
  Weight: 66.6 kg

DRUGS (4)
  1. PIQRAY [Suspect]
     Active Substance: ALPELISIB
     Dosage: UNK
     Route: 065
     Dates: start: 20210729
  2. FULVESTRANT. [Concomitant]
     Active Substance: FULVESTRANT
     Indication: BREAST CANCER METASTATIC
     Dosage: 500 MG, QD (1 OF CYCLE)
     Route: 065
     Dates: start: 20210623, end: 20210623
  3. PIQRAY [Suspect]
     Active Substance: ALPELISIB
     Indication: BREAST CANCER METASTATIC
     Dosage: FIRST CYCLE
     Route: 065
     Dates: start: 20210331
  4. PIQRAY [Suspect]
     Active Substance: ALPELISIB
     Dosage: 300 MG, QD
     Route: 048
     Dates: start: 20210623

REACTIONS (3)
  - COVID-19 [Recovered/Resolved]
  - Body temperature increased [Unknown]
  - Rhinorrhoea [Unknown]

NARRATIVE: CASE EVENT DATE: 20210721
